FAERS Safety Report 15158619 (Version 3)
Quarter: 2020Q2

REPORT INFORMATION
  Report Type: Report from Study
  Country: US (occurrence: US)
  Receive Date: 20180718
  Receipt Date: 20200504
  Transmission Date: 20200713
  Serious: Yes (Other)
  Sender: FDA-Public Use
  Company Number: PHEH2018US029410

PATIENT
  Sex: Female

DRUGS (1)
  1. AFINITOR [Suspect]
     Active Substance: EVEROLIMUS
     Indication: ASTROCYTOMA, LOW GRADE
     Dosage: 10 MG, QD
     Route: 048
     Dates: start: 20150513

REACTIONS (5)
  - Influenza [Recovered/Resolved]
  - Weight decreased [Unknown]
  - Drug level decreased [Unknown]
  - Seizure [Unknown]
  - Blood cholesterol increased [Unknown]
